FAERS Safety Report 10166946 (Version 1)
Quarter: 2014Q2

REPORT INFORMATION
  Report Type: Spontaneous
  Country: CN (occurrence: CN)
  Receive Date: 20140512
  Receipt Date: 20140512
  Transmission Date: 20141212
  Serious: Yes (Other)
  Sender: FDA-Public Use
  Company Number: PHHY2014CN056205

PATIENT
  Age: 16 Year
  Sex: Male

DRUGS (5)
  1. QUETIAPINE [Suspect]
     Indication: BIPOLAR DISORDER
     Dosage: 50 MG, PER DAY
  2. QUETIAPINE [Suspect]
     Dosage: 150 MG, PER DAY
  3. QUETIAPINE [Suspect]
     Dosage: 600 MG, PER DAY
  4. QUETIAPINE [Suspect]
     Dosage: 50 MG, PER DAY
  5. QUETIAPINE [Suspect]
     Dosage: 600 MG, PER DAY

REACTIONS (4)
  - Tic [Recovered/Resolved]
  - Corneal reflex decreased [Recovered/Resolved]
  - Dyskinesia [Recovered/Resolved]
  - Psychomotor hyperactivity [Recovered/Resolved]
